FAERS Safety Report 7355845-5 (Version None)
Quarter: 2011Q1

REPORT INFORMATION
  Report Type: 
  Country: None (occurrence: None)
  Receive Date: 20110316
  Receipt Date: 20110307
  Transmission Date: 20110831
  Serious: Yes (Other)
  Sender: FDA-Public Use
  Company Number: GB-BRISTOL-MYERS SQUIBB COMPANY-15405996

PATIENT
  Age: 44 Year
  Sex: Female
  Weight: 83 kg

DRUGS (7)
  1. GLUCOPHAGE [Suspect]
     Indication: DIABETES MELLITUS INADEQUATE CONTROL
     Dosage: REINTRODUCED AFTER THE MISCARRIAGE
     Route: 048
     Dates: end: 20100804
  2. NOVORAPID [Suspect]
     Indication: DIABETES MELLITUS INADEQUATE CONTROL
     Route: 058
     Dates: start: 20100804, end: 20100101
  3. VICTOZA [Suspect]
     Indication: DIABETES MELLITUS INADEQUATE CONTROL
     Dosage: 9MAR10:UNK:0.6MG UNK:4AUG10:1.2IU REINTRODUCED AFTER THE MISCARRIAGE
     Route: 058
     Dates: start: 20100309, end: 20100804
  4. LEVEMIR [Suspect]
     Indication: DIABETES MELLITUS INADEQUATE CONTROL
     Route: 058
     Dates: start: 20100804, end: 20100101
  5. PERINDOPRIL ERBUMINE [Concomitant]
     Route: 048
     Dates: start: 20090316, end: 20100804
  6. ROSUVASTATIN [Concomitant]
     Route: 048
     Dates: start: 20070101, end: 20100804
  7. DIAMICRON [Suspect]
     Indication: DIABETES MELLITUS INADEQUATE CONTROL
     Dosage: REINTRODUCED AFTER THE MISCARRIAGE
     Route: 048

REACTIONS (4)
  - GLYCOSYLATED HAEMOGLOBIN INCREASED [None]
  - DRUG EXPOSURE DURING PREGNANCY [None]
  - ABORTION SPONTANEOUS [None]
  - PREGNANCY [None]
